FAERS Safety Report 13270219 (Version 2)
Quarter: 2017Q1

REPORT INFORMATION
  Report Type: Report from Study
  Country: None (occurrence: PA)
  Receive Date: 20170224
  Receipt Date: 20170310
  Transmission Date: 20170428
  Serious: Yes (Hospitalization, Other)
  Sender: FDA-Public Use
  Company Number: PA-ABBVIE-17P-125-1877255-00

PATIENT
  Age: 67 Year
  Sex: Male

DRUGS (3)
  1. PARICALCITOL. [Suspect]
     Active Substance: PARICALCITOL
     Indication: HYPERPARATHYROIDISM SECONDARY
     Route: 042
     Dates: start: 20161020
  2. APROVEL? (IRBESARTAN) [Concomitant]
     Indication: PRODUCT USED FOR UNKNOWN INDICATION
  3. TRADJENTA? (LINAGLIPTIN) [Concomitant]
     Indication: PRODUCT USED FOR UNKNOWN INDICATION

REACTIONS (7)
  - Toe amputation [Unknown]
  - Wound secretion [Not Recovered/Not Resolved]
  - Pain in extremity [Not Recovered/Not Resolved]
  - Mobility decreased [Not Recovered/Not Resolved]
  - Leg amputation [Unknown]
  - Skin ulcer [Not Recovered/Not Resolved]
  - Extremity necrosis [Unknown]

NARRATIVE: CASE EVENT DATE: 20170201
